FAERS Safety Report 17771892 (Version 2)
Quarter: 2020Q2

REPORT INFORMATION
  Report Type: Spontaneous
  Country: IL (occurrence: IL)
  Receive Date: 20200512
  Receipt Date: 20200619
  Transmission Date: 20200714
  Serious: Yes (Other)
  Sender: FDA-Public Use
  Company Number: IL-ROCHE-2596694

PATIENT
  Age: 59 Year
  Sex: Male

DRUGS (18)
  1. CARBOPLATIN. [Suspect]
     Active Substance: CARBOPLATIN
     Indication: NON-HODGKIN^S LYMPHOMA
     Dosage: SECOND LINE TREATMENT
     Route: 065
  2. ETOPOSIDE. [Suspect]
     Active Substance: ETOPOSIDE
     Indication: NON-HODGKIN^S LYMPHOMA
     Dosage: SECOND LINE TREATMENT
     Route: 065
  3. LYRICA [Concomitant]
     Active Substance: PREGABALIN
     Route: 048
  4. ENALADEX [Concomitant]
     Active Substance: ENALAPRIL MALEATE
     Route: 048
  5. VINCRISTINE SULFATE. [Suspect]
     Active Substance: VINCRISTINE SULFATE
     Indication: NON-HODGKIN^S LYMPHOMA
     Dosage: FIRST LINE TREATMENT
     Route: 065
  6. PREDNISOLONE. [Suspect]
     Active Substance: PREDNISOLONE
     Indication: NON-HODGKIN^S LYMPHOMA
     Dosage: FIRST LINE TREATMENT
     Route: 065
  7. CYTARABINE. [Suspect]
     Active Substance: CYTARABINE
     Indication: NON-HODGKIN^S LYMPHOMA
     Dosage: THIRD LINE TREATMENT
     Route: 065
  8. CYCLOPHOSPHAMIDE. [Suspect]
     Active Substance: CYCLOPHOSPHAMIDE
     Indication: NON-HODGKIN^S LYMPHOMA
     Dosage: FIRST LINE TREATMENT
     Route: 065
  9. LOSEC [Concomitant]
     Active Substance: OMEPRAZOLE
     Dosage: A HALF-HOUR BEFORE FOOD
     Route: 048
  10. TARGIN [Concomitant]
     Active Substance: NALOXONE HYDROCHLORIDE\OXYCODONE HYDROCHLORIDE
     Dosage: 20 2 TABX 2D AT A DOSAGE OF 20 MILIGRAMS A DAY TWICE, IN TOTAL 60 TABLETS A MONTH
     Route: 048
  11. SIMVACOR [Concomitant]
     Active Substance: SIMVASTATIN
     Route: 048
  12. DEXAMETHASONE. [Suspect]
     Active Substance: DEXAMETHASONE
     Indication: NON-HODGKIN^S LYMPHOMA
     Dosage: THIRD LINE TREATMENT
     Route: 065
  13. OXALIPLATIN. [Suspect]
     Active Substance: OXALIPLATIN
     Indication: NON-HODGKIN^S LYMPHOMA
     Dosage: THIRD LINE TREATMENT
     Route: 065
  14. DOXORUBICIN HYDROCHLORIDE. [Suspect]
     Active Substance: DOXORUBICIN HYDROCHLORIDE
     Indication: NON-HODGKIN^S LYMPHOMA
     Dosage: FIRST LINE TREATMENT
     Route: 065
  15. RITUXIMAB. [Suspect]
     Active Substance: RITUXIMAB
     Indication: NON-HODGKIN^S LYMPHOMA
     Dosage: 3 LINES OF TREATMENT
     Route: 065
  16. IFOSFAMIDE. [Suspect]
     Active Substance: IFOSFAMIDE
     Indication: NON-HODGKIN^S LYMPHOMA
     Dosage: SECOND LINE TREATMENT
     Route: 065
  17. MICROPIRIN [Concomitant]
     Active Substance: ASPIRIN
     Route: 048
  18. OXYCOD [OXYCODONE HYDROCHLORIDE] [Concomitant]
     Indication: PAIN
     Dosage: 2MG/L, 6MGX 4/D, UP TO 4 TIMES A DAY, 6 HOURS APART
     Route: 048

REACTIONS (3)
  - Splenomegaly [Unknown]
  - Therapy non-responder [Unknown]
  - Abdominal discomfort [Unknown]
